FAERS Safety Report 6305583-2 (Version None)
Quarter: 2009Q3

REPORT INFORMATION
  Report Type: 
  Country: None (occurrence: None)
  Receive Date: 20090807
  Receipt Date: 20090802
  Transmission Date: 20100115
  Serious: Yes (Death)
  Sender: FDA-Public Use
  Company Number: 09CH001185

PATIENT
  Age: 52 Year
  Sex: Male
  Weight: 74.5 kg

DRUGS (4)
  1. VALPROIC ACID [Suspect]
     Indication: EPILEPSY
     Dosage: ORAL
     Route: 048
  2. NAFTIDROFURYL (NAFTIDROFURYL) [Concomitant]
  3. DISULFIRAM [Concomitant]
  4. MEFENAMIC ACID [Concomitant]

REACTIONS (8)
  - ARTERIOSCLEROSIS CORONARY ARTERY [None]
  - CARDIAC DEATH [None]
  - CONVULSION [None]
  - CORONARY ARTERY DISEASE [None]
  - DIZZINESS [None]
  - INTENTIONAL OVERDOSE [None]
  - SCRATCH [None]
  - TONGUE INJURY [None]
